FAERS Safety Report 16926677 (Version 2)
Quarter: 2020Q1

REPORT INFORMATION
  Report Type: Spontaneous
  Country: US (occurrence: US)
  Receive Date: 20191016
  Receipt Date: 20200114
  Transmission Date: 20200409
  Serious: Yes (Hospitalization)
  Sender: FDA-Public Use
  Company Number: US-SA-2019SA283906

PATIENT
  Age: 64 Year
  Sex: Female
  Weight: 66.67 kg

DRUGS (18)
  1. FABRAZYME [Suspect]
     Active Substance: AGALSIDASE BETA
     Indication: FABRY^S DISEASE
     Dosage: 70 MG, EVERY 2 WEEKS
     Route: 041
     Dates: start: 20120724
  2. DIPHENHYDRAMINE. [Concomitant]
     Active Substance: DIPHENHYDRAMINE
     Indication: ANAPHYLACTIC REACTION
     Dosage: 50 MG
     Route: 048
     Dates: start: 20190429
  3. STERILE WATER [Concomitant]
     Active Substance: WATER
     Dosage: 1 EACH,RECONSTITUTE
     Route: 042
     Dates: start: 20190429
  4. EPINEPHRINE. [Concomitant]
     Active Substance: EPINEPHRINE
     Indication: ANAPHYLACTIC REACTION
     Dosage: 0.3 MG
     Route: 030
     Dates: start: 20190429
  5. CRESTOR [Concomitant]
     Active Substance: ROSUVASTATIN CALCIUM
     Dosage: 1 TAB, QD
     Route: 048
     Dates: start: 20130822
  6. SODIUM CHLORIDE. [Concomitant]
     Active Substance: SODIUM CHLORIDE
     Dosage: 0.90 %
     Route: 042
     Dates: start: 20190429
  7. METOPROLOL. [Concomitant]
     Active Substance: METOPROLOL
     Dosage: 12.5 MG, BID
     Route: 048
     Dates: start: 20130822
  8. NORCO [Concomitant]
     Active Substance: ACETAMINOPHEN\HYDROCODONE BITARTRATE
     Dosage: 1 TAB, TID
     Route: 048
     Dates: start: 20130822
  9. HEPARIN [Concomitant]
     Active Substance: HEPARIN SODIUM
     Dosage: 100 UNIT/MLUNK
     Route: 042
     Dates: start: 20190429
  10. CITALOPRAM [Concomitant]
     Active Substance: CITALOPRAM HYDROBROMIDE
     Dosage: 1 TAB, QD
     Route: 048
     Dates: start: 20160824
  11. NORVASC [Concomitant]
     Active Substance: AMLODIPINE BESYLATE
     Dosage: 1 TAB, QD
     Route: 048
     Dates: start: 20130822
  12. GABAPENTIN. [Concomitant]
     Active Substance: GABAPENTIN
     Dosage: 1 DF, TID
     Route: 048
     Dates: start: 20130822
  13. ACETAMINOPHEN. [Concomitant]
     Active Substance: ACETAMINOPHEN
  14. GLUCOSAMINE AND CHONDROITIN [Concomitant]
     Active Substance: CHONDROITIN SULFATE (BOVINE)\GLUCOSAMINE HYDROCHLORIDE
     Dosage: 1 UNIT, QD
     Route: 048
     Dates: start: 20160824
  15. ELMIRON [Concomitant]
     Active Substance: PENTOSAN POLYSULFATE SODIUM
     Dosage: 1 CAP, TID
     Route: 048
     Dates: start: 20130822
  16. PLAVIX [Concomitant]
     Active Substance: CLOPIDOGREL BISULFATE
     Dosage: 1 TAB
     Route: 048
     Dates: start: 20130822
  17. NORMAL SALINE [Concomitant]
     Active Substance: SODIUM CHLORIDE
     Dosage: 0.90 %
     Route: 042
     Dates: start: 20190429
  18. SYNTHROID [Concomitant]
     Active Substance: LEVOTHYROXINE SODIUM
     Dosage: 1 TAB, QD
     Route: 048
     Dates: start: 20130822

REACTIONS (2)
  - Stent placement [Unknown]
  - Cystitis [Unknown]
